FAERS Safety Report 24175818 (Version 2)
Quarter: 2024Q3

REPORT INFORMATION
  Report Type: Report from Study
  Country: US (occurrence: US)
  Receive Date: 20240805
  Receipt Date: 20240825
  Transmission Date: 20241016
  Serious: Yes (Hospitalization)
  Sender: BAUSCH AND LOMB
  Company Number: US-BAUSCHBL-2024BNL030878

PATIENT
  Age: 88 Year
  Sex: Female

DRUGS (1)
  1. XIIDRA [Suspect]
     Active Substance: LIFITEGRAST
     Indication: Product used for unknown indication
     Dosage: START ABOUT 7 YEARS AGO
     Route: 047

REACTIONS (3)
  - Dizziness [Unknown]
  - Eye pain [Unknown]
  - Vision blurred [Unknown]
